FAERS Safety Report 6430877-X (Version None)
Quarter: 2009Q4

REPORT INFORMATION
  Report Type: 
  Country: None (occurrence: None)
  Receive Date: 20091105
  Receipt Date: 20091105
  Transmission Date: 20100525
  Serious: Yes (Life-Threatening, Hospitalization)
  Sender: FDA-Public Use
  Company Number: None

PATIENT
  Sex: Female
  Weight: 55.5 kg

DRUGS (2)
  1. BUPROPION HCL [Suspect]
     Indication: DEPRESSION
     Dosage: 150MG QD X 3 DAYS PO
     Route: 048
     Dates: start: 20090928, end: 20091021
  2. BUPROPION HCL [Suspect]
     Dosage: 300MG QAM PO
     Route: 048

REACTIONS (10)
  - ANXIETY [None]
  - APNOEA [None]
  - CYANOSIS [None]
  - FALL [None]
  - FATIGUE [None]
  - GRAND MAL CONVULSION [None]
  - IMPAIRED DRIVING ABILITY [None]
  - IMPAIRED WORK ABILITY [None]
  - MIGRAINE [None]
  - TRISMUS [None]
